FAERS Safety Report 22203894 (Version 2)
Quarter: 2023Q2

REPORT INFORMATION
  Report Type: Spontaneous
  Country: JP (occurrence: JP)
  Receive Date: 20230412
  Receipt Date: 20230608
  Transmission Date: 20230722
  Serious: Yes (Other)
  Sender: FDA-Public Use
  Company Number: JP-Eisai-202300124_LEN-EC_P_1

PATIENT
  Age: 45 Year
  Sex: Female

DRUGS (4)
  1. LENVATINIB [Suspect]
     Active Substance: LENVATINIB
     Indication: Endometrial cancer recurrent
     Route: 048
  2. LENVATINIB [Suspect]
     Active Substance: LENVATINIB
     Dosage: ONE-LEVEL DOSE REDUCTION
     Route: 048
  3. LENVATINIB [Suspect]
     Active Substance: LENVATINIB
     Dosage: TWO-LEVEL DOSE REDUCTION
     Route: 048
  4. KEYTRUDA [Concomitant]
     Active Substance: PEMBROLIZUMAB
     Indication: Endometrial cancer recurrent
     Route: 041

REACTIONS (4)
  - Septic shock [Recovering/Resolving]
  - Pyrexia [Recovering/Resolving]
  - Hypertension [Recovering/Resolving]
  - Liver disorder [Recovering/Resolving]
